FAERS Safety Report 19261425 (Version 1)
Quarter: 2021Q2

REPORT INFORMATION
  Report Type: Spontaneous
  Country: US (occurrence: US)
  Receive Date: 20210515
  Receipt Date: 20210515
  Transmission Date: 20210717
  Serious: Yes (Other)
  Sender: FDA-Public Use
  Company Number: NVSC2021US099108

PATIENT
  Age: 32 Year
  Sex: Male
  Weight: 91.2 kg

DRUGS (3)
  1. CELLCEPT [Suspect]
     Active Substance: MYCOPHENOLATE MOFETIL\MYCOPHENOLATE MOFETIL HYDROCHLORIDE
     Indication: PRODUCT USED FOR UNKNOWN INDICATION
     Dosage: UNK
     Route: 065
  2. ZOFRAN [Suspect]
     Active Substance: ONDANSETRON HYDROCHLORIDE
     Indication: PRODUCT USED FOR UNKNOWN INDICATION
     Route: 065
  3. LIPITOR [Concomitant]
     Active Substance: ATORVASTATIN CALCIUM
     Indication: PRODUCT USED FOR UNKNOWN INDICATION
     Dosage: UNK
     Route: 065

REACTIONS (19)
  - Blindness [Unknown]
  - Deafness [Unknown]
  - Anxiety [Unknown]
  - ADAMTS13 activity decreased [Unknown]
  - Blood lactate dehydrogenase increased [Unknown]
  - Diarrhoea [Unknown]
  - Oral blood blister [Unknown]
  - Incorrect dose administered [Unknown]
  - Injection site extravasation [Unknown]
  - Epistaxis [Unknown]
  - Platelet count increased [Unknown]
  - Back pain [Unknown]
  - Gingival bleeding [Unknown]
  - Skin haemorrhage [Unknown]
  - Vomiting [Unknown]
  - Decreased appetite [Unknown]
  - Blood pressure abnormal [Unknown]
  - Nausea [Unknown]
  - Contusion [Unknown]

NARRATIVE: CASE EVENT DATE: 201911
